FAERS Safety Report 13648610 (Version 2)
Quarter: 2017Q2

REPORT INFORMATION
  Report Type: Spontaneous
  Country: FR (occurrence: FR)
  Receive Date: 20170613
  Receipt Date: 20170623
  Transmission Date: 20170830
  Serious: Yes (Death)
  Sender: FDA-Public Use
  Company Number: FR-PFIZER INC-2017252350

PATIENT
  Age: 40 Year
  Sex: Male

DRUGS (7)
  1. METHOTREXATE SODIUM. [Suspect]
     Active Substance: METHOTREXATE SODIUM
     Indication: IMMUNOBLASTIC LYMPHOMA
     Dosage: 4.5 G, IN 6 HOURS
     Route: 041
  2. VINCRISTINE [Concomitant]
     Active Substance: VINCRISTINE
     Indication: IMMUNOBLASTIC LYMPHOMA
     Dosage: UNK, CYCLIC
  3. BLEOMYCIN [Concomitant]
     Active Substance: BLEOMYCIN SULFATE
     Indication: IMMUNOBLASTIC LYMPHOMA
     Dosage: UNK, CYCLIC
  4. ADRIAMYCIN [Concomitant]
     Active Substance: DOXORUBICIN HYDROCHLORIDE
     Indication: IMMUNOBLASTIC LYMPHOMA
     Dosage: UNK, CYCLIC
  5. CYCLOPHOSPHAMIDE. [Concomitant]
     Active Substance: CYCLOPHOSPHAMIDE
     Indication: IMMUNOBLASTIC LYMPHOMA
     Dosage: UNK, CYCLIC
  6. FOLINIC ACID [Concomitant]
     Active Substance: LEUCOVORIN
     Indication: IMMUNOBLASTIC LYMPHOMA
     Dosage: 25 MG, EVERY 3 HOURS
     Route: 042
  7. FOLINIC ACID [Concomitant]
     Active Substance: LEUCOVORIN
     Dosage: 50 MG, EVERY 3 HOURS (OVER THE FOLLOWING 48 HOURS)
     Route: 042

REACTIONS (1)
  - Toxicity to various agents [Fatal]
